FAERS Safety Report 14938617 (Version 1)
Quarter: 2018Q2

REPORT INFORMATION
  Report Type: Spontaneous
  Country: US (occurrence: US)
  Receive Date: 20180507
  Receipt Date: 20180507
  Transmission Date: 20180711
  Serious: Yes (Hospitalization, Other)
  Sender: FDA-Public Use
  Company Number: None

PATIENT
  Age: 42 Year
  Sex: Female
  Weight: 54.43 kg

DRUGS (3)
  1. ALBUTEROL. [Concomitant]
     Active Substance: ALBUTEROL
  2. LORAZEPAM. [Suspect]
     Active Substance: LORAZEPAM
     Indication: ANXIETY
     Dosage: ?          QUANTITY:15 DF DOSAGE FORM;OTHER FREQUENCY:1 PILL 3 X DAY;?
     Route: 048
     Dates: start: 20180409, end: 20180410
  3. LORAZEPAM. [Suspect]
     Active Substance: LORAZEPAM
     Indication: TREMOR
     Dosage: ?          QUANTITY:15 DF DOSAGE FORM;OTHER FREQUENCY:1 PILL 3 X DAY;?
     Route: 048
     Dates: start: 20180409, end: 20180410

REACTIONS (4)
  - Bladder irritation [None]
  - Pelvic pain [None]
  - Urinary retention [None]
  - Pain [None]

NARRATIVE: CASE EVENT DATE: 20180409
